FAERS Safety Report 4432161-2 (Version None)
Quarter: 2004Q3

REPORT INFORMATION
  Report Type: 
  Country: None (occurrence: None)
  Receive Date: 20040820
  Receipt Date: 20040810
  Transmission Date: 20050211
  Serious: Yes (Other)
  Sender: FDA-Public Use
  Company Number: 2004053807

PATIENT
  Age: 59 Year
  Sex: Male

DRUGS (4)
  1. LIPITOR [Suspect]
     Indication: HYPERCHOLESTEROLAEMIA
     Dosage: 20 MG (20 MG, 1 IN 1 D), ORAL
     Route: 048
     Dates: start: 19980101, end: 20040724
  2. XANTINOL NICOTINATE (XANTINOL NICOTINATE) [Concomitant]
  3. INSULIN LISPRO (INSULIN LISPRO) [Concomitant]
  4. VARDENAFIL HYDROCHLORIDE (VARDENAFIL HYDROCHLORIDE) [Concomitant]

REACTIONS (1)
  - GLOBAL AMNESIA [None]
